FAERS Safety Report 5238703-1 (Version None)
Quarter: 2007Q1

REPORT INFORMATION
  Report Type: 
  Country: None (occurrence: None)
  Receive Date: 20061208
  Receipt Date: 20050208
  Transmission Date: 20070707
  Serious: Yes (Other)
  Sender: FDA-Public Use
  Company Number: 2005UW00744

PATIENT
  Age: 77 Year
  Sex: Male
  Weight: 81.646 kg

DRUGS (9)
  1. CRESTOR [Suspect]
     Indication: BLOOD CHOLESTEROL INCREASED
     Dosage: 5 MG PO
     Route: 048
     Dates: start: 20040101
  2. PRILOSEC [Concomitant]
  3. FLUOXETINE HYDROCHLORIDE [Concomitant]
  4. ECOTRIN [Concomitant]
  5. COENZYME Q10 [Concomitant]
  6. NEXIUM [Concomitant]
  7. FLURAZEPAM [Concomitant]
  8. ACETYLSALICYLIC ACID SRT [Concomitant]
  9. MIRTAZAPINE [Concomitant]

REACTIONS (2)
  - MYALGIA [None]
  - RETINAL DISORDER [None]
